FAERS Safety Report 17054823 (Version 1)
Quarter: 2019Q4

REPORT INFORMATION
  Report Type: Spontaneous
  Country: IT (occurrence: IT)
  Receive Date: 20191120
  Receipt Date: 20191120
  Transmission Date: 20200122
  Serious: Yes (Congenital Anomaly, Other)
  Sender: FDA-Public Use
  Company Number: IT-MYLANLABS-2019M1110849

PATIENT
  Sex: Female

DRUGS (3)
  1. PREDNISONE. [Suspect]
     Active Substance: PREDNISONE
     Indication: INFANTILE CORTICAL HYPEROSTOSIS
     Dosage: UNK
     Route: 048
  2. ANAKINRA [Concomitant]
     Active Substance: ANAKINRA
     Dosage: UNK
  3. MORPHINE [Concomitant]
     Active Substance: MORPHINE
     Dosage: UNK
     Route: 042

REACTIONS (5)
  - Joint swelling [Recovering/Resolving]
  - Osteopenia [Recovering/Resolving]
  - Drug abuse [Unknown]
  - Infantile cortical hyperostosis [Recovering/Resolving]
  - Rebound effect [Recovering/Resolving]
